FAERS Safety Report 10031968 (Version 2)
Quarter: 2014Q2

REPORT INFORMATION
  Report Type: Spontaneous
  Country: AU (occurrence: AU)
  Receive Date: 20140324
  Receipt Date: 20140416
  Transmission Date: 20141212
  Serious: Yes (Hospitalization, Disabling)
  Sender: FDA-Public Use
  Company Number: AU-B.I. PHARMACEUTICALS,INC./RIDGEFIELD-2014-BI-12324AU

PATIENT
  Age: 70 Year
  Sex: Female
  Weight: 60 kg

DRUGS (4)
  1. PRADAXA [Suspect]
     Indication: ATRIAL FIBRILLATION
     Dosage: 300 MG
     Route: 065
     Dates: start: 2013, end: 201402
  2. PRADAXA [Suspect]
     Indication: CARDIOVASCULAR DISORDER
     Dosage: 300 MG
     Route: 065
     Dates: start: 20140321
  3. VERAPAMIL [Concomitant]
     Route: 065
     Dates: start: 2013
  4. METHYLDOPA [Concomitant]
     Dosage: 500 MG
     Route: 065
     Dates: start: 2013

REACTIONS (1)
  - Cerebrovascular accident [Not Recovered/Not Resolved]
